FAERS Safety Report 11425359 (Version 1)
Quarter: 2015Q3

REPORT INFORMATION
  Report Type: Spontaneous
  Country: GB (occurrence: GB)
  Receive Date: 20150827
  Receipt Date: 20150827
  Transmission Date: 20151125
  Serious: Yes (Other)
  Sender: FDA-Public Use
  Company Number: GB-GLAXOSMITHKLINE-GB2015120952

PATIENT
  Age: 80 Year
  Sex: Male
  Weight: 64 kg

DRUGS (12)
  1. FERROUS FUMARATE [Concomitant]
     Active Substance: FERROUS FUMARATE
  2. SYMBICORT [Concomitant]
     Active Substance: BUDESONIDE\FORMOTEROL FUMARATE DIHYDRATE
  3. SLO-PHYLLIN [Concomitant]
     Active Substance: THEOPHYLLINE ANHYDROUS
  4. CYPROTERONE [Concomitant]
     Active Substance: CYPROTERONE
  5. SALBUTAMOL [Concomitant]
     Active Substance: ALBUTEROL
  6. TIOTROPIUM [Concomitant]
     Active Substance: TIOTROPIUM
  7. VESOMNI [Concomitant]
  8. ADALAT CC [Concomitant]
     Active Substance: NIFEDIPINE
  9. RELVAR ELLIPTA [Suspect]
     Active Substance: FLUTICASONE FUROATE\VILANTEROL TRIFENATATE
     Indication: ASTHMA
     Route: 055
     Dates: start: 20150811, end: 20150812
  10. FUROSEMID [Concomitant]
     Active Substance: FUROSEMIDE
  11. MONTELUKAST SODIUM. [Concomitant]
     Active Substance: MONTELUKAST SODIUM
  12. QUININE BISULFATE [Concomitant]
     Active Substance: QUININE BISULFATE

REACTIONS (2)
  - Dyspnoea [Recovered/Resolved with Sequelae]
  - Wheezing [Recovered/Resolved with Sequelae]

NARRATIVE: CASE EVENT DATE: 20150811
